FAERS Safety Report 19819087 (Version 2)
Quarter: 2021Q3

REPORT INFORMATION
  Report Type: Report from Study
  Country: None (occurrence: CL)
  Receive Date: 20210913
  Receipt Date: 20210929
  Transmission Date: 20211014
  Serious: Yes (Other)
  Sender: FDA-Public Use
  Company Number: CL-ABBVIE-21K-034-4055110-00

PATIENT
  Sex: Male

DRUGS (2)
  1. MADOZIDE [Concomitant]
     Indication: PRODUCT USED FOR UNKNOWN INDICATION
  2. HUMIRA [Suspect]
     Active Substance: ADALIMUMAB
     Indication: CROHN^S DISEASE
     Route: 058
     Dates: start: 20191009

REACTIONS (10)
  - Tuberculosis [Recovering/Resolving]
  - Hypotension [Unknown]
  - Body temperature decreased [Unknown]
  - Platelet count decreased [Unknown]
  - Respiratory disorder [Unknown]
  - Tremor [Unknown]
  - Gait inability [Recovering/Resolving]
  - Blood sodium decreased [Unknown]
  - Seizure [Unknown]
  - Oral disorder [Recovering/Resolving]

NARRATIVE: CASE EVENT DATE: 2021
